FAERS Safety Report 10070129 (Version 1)
Quarter: 2014Q2

REPORT INFORMATION
  Report Type: Spontaneous
  Country: US (occurrence: None)
  Receive Date: 20140409
  Receipt Date: 20140409
  Transmission Date: 20141212
  Serious: Yes (Other)
  Sender: FDA-Public Use
  Company Number: None

PATIENT
  Age: 57 Year
  Sex: Female
  Weight: 147.87 kg

DRUGS (1)
  1. LEUCOVORIN [Suspect]
     Indication: COLORECTAL CANCER
     Dosage: 400MG/M2 EVERY 14 DAYS INTRAVENOUS
     Route: 042

REACTIONS (8)
  - Nausea [None]
  - Dyspnoea [None]
  - Asthenia [None]
  - Retching [None]
  - Skin discolouration [None]
  - Headache [None]
  - Loss of consciousness [None]
  - Infusion related reaction [None]
